FAERS Safety Report 24306702 (Version 1)
Quarter: 2024Q3

REPORT INFORMATION
  Report Type: Spontaneous
  Country: CN (occurrence: CN)
  Receive Date: 20240911
  Receipt Date: 20240911
  Transmission Date: 20241016
  Serious: Yes (Other)
  Sender: PFIZER
  Company Number: CN-PFIZER INC-PV202400118185

PATIENT
  Age: 61 Year
  Sex: Female
  Weight: 64 kg

DRUGS (2)
  1. EXEMESTANE [Suspect]
     Active Substance: EXEMESTANE
     Indication: Breast cancer
     Dosage: 25 MG ONCE A DAY
     Route: 048
     Dates: start: 20240520, end: 20240823
  2. DALPICICLIB ISETHIONATE [Suspect]
     Active Substance: DALPICICLIB ISETHIONATE
     Indication: Breast cancer
     Dosage: 150 MG ONCE A DAY, THREE WEEKS ON AND ONE WEEK OFF
     Route: 048
     Dates: start: 20240520, end: 20240823

REACTIONS (1)
  - Myelosuppression [Recovering/Resolving]

NARRATIVE: CASE EVENT DATE: 20240823
